FAERS Safety Report 17550123 (Version 1)
Quarter: 2020Q1

REPORT INFORMATION
  Report Type: Spontaneous
  Country: US (occurrence: US)
  Receive Date: 20200317
  Receipt Date: 20200317
  Transmission Date: 20200409
  Serious: No
  Sender: FDA-Public Use
  Company Number: US-AMGEN INC.-USASP2020039858

PATIENT
  Age: 58 Year
  Sex: Female

DRUGS (2)
  1. BUTALBITAL APAP CAFFEINE [Concomitant]
     Active Substance: ACETAMINOPHEN\BUTALBITAL\CAFFEINE
  2. AIMOVIG [Suspect]
     Active Substance: ERENUMAB-AOOE
     Indication: MIGRAINE PROPHYLAXIS
     Dosage: 140 MILLIGRAM
     Route: 065
     Dates: start: 20200220

REACTIONS (7)
  - Swelling [Not Recovered/Not Resolved]
  - Chills [Not Recovered/Not Resolved]
  - Muscle spasms [Not Recovered/Not Resolved]
  - Paraesthesia [Not Recovered/Not Resolved]
  - Injection site pain [Unknown]
  - Urticaria [Not Recovered/Not Resolved]
  - Injection site warmth [Unknown]

NARRATIVE: CASE EVENT DATE: 20200220
